FAERS Safety Report 25014229 (Version 1)
Quarter: 2025Q1

REPORT INFORMATION
  Report Type: Report from Study
  Country: FR (occurrence: FR)
  Receive Date: 20250226
  Receipt Date: 20250226
  Transmission Date: 20250409
  Serious: Yes (Other)
  Sender: MYLAN
  Company Number: FR-MYLANLABS-2025M1016072

PATIENT
  Age: 12 Year
  Sex: Male

DRUGS (12)
  1. PREDNISONE [Suspect]
     Active Substance: PREDNISONE
     Indication: Prophylaxis against transplant rejection
     Dosage: 0.5 MILLIGRAM/KILOGRAM, QD
  2. MYCOPHENOLATE MOFETIL [Suspect]
     Active Substance: MYCOPHENOLATE MOFETIL
     Indication: Prophylaxis against transplant rejection
     Dosage: 20 MILLIGRAM/KILOGRAM, QD
  3. TACROLIMUS [Suspect]
     Active Substance: TACROLIMUS
     Indication: Prophylaxis against transplant rejection
     Dosage: 0.02 MILLIGRAM/KILOGRAM, QD
  4. EVEROLIMUS [Suspect]
     Active Substance: EVEROLIMUS
     Indication: Prophylaxis against transplant rejection
  5. VORICONAZOLE [Suspect]
     Active Substance: VORICONAZOLE
     Indication: Antifungal prophylaxis
     Dosage: 8 MILLIGRAM/KILOGRAM, QD
  6. HYDROXYCHLOROQUINE [Suspect]
     Active Substance: HYDROXYCHLOROQUINE
     Indication: Prophylaxis against transplant rejection
     Dosage: 6 MILLIGRAM/KILOGRAM, QD
  7. COTRIMOXAZOLE [Suspect]
     Active Substance: SULFAMETHOXAZOLE\TRIMETHOPRIM
     Indication: Antibiotic prophylaxis
     Dosage: 8 MILLIGRAM/KILOGRAM, Q3W
  8. AMPHOTERICIN B [Suspect]
     Active Substance: AMPHOTERICIN B
     Indication: Antifungal prophylaxis
     Dosage: 3 MILLIGRAM/KILOGRAM, QD
  9. RUXOLITINIB [Concomitant]
     Active Substance: RUXOLITINIB
     Indication: STING-associated vasculopathy with onset in infancy
  10. RUXOLITINIB [Concomitant]
     Active Substance: RUXOLITINIB
     Dosage: 0.4 MILLIGRAM/KILOGRAM, QD
  11. ENOXAPARIN [Concomitant]
     Active Substance: ENOXAPARIN
     Indication: Renal vein thrombosis
  12. RIVAROXABAN [Concomitant]
     Active Substance: RIVAROXABAN
     Indication: Renal vein thrombosis

REACTIONS (8)
  - Drug ineffective [Unknown]
  - Pseudomonas infection [Unknown]
  - Aspergillus infection [Unknown]
  - Toxicity to various agents [Unknown]
  - Pneumonia [Unknown]
  - BK virus infection [Not Recovered/Not Resolved]
  - Renal impairment [Recovered/Resolved]
  - Viral haemorrhagic cystitis [Unknown]
